FAERS Safety Report 8146892-4 (Version None)
Quarter: 2012Q1

REPORT INFORMATION
  Report Type: 
  Country: None (occurrence: None)
  Receive Date: 20120217
  Receipt Date: 20120127
  Transmission Date: 20120608
  Serious: Yes (Hospitalization)
  Sender: FDA-Public Use
  Company Number: GR-ABBOTT-12P-066-0899167-00

PATIENT
  Age: 63 Year
  Sex: Male
  Weight: 81 kg

DRUGS (12)
  1. AMLODIPINE [Concomitant]
     Indication: HYPERTENSION
     Route: 048
     Dates: start: 20090101
  2. CINACALCET HYDROCHLORIDE [Concomitant]
     Indication: HYPERPARATHYROIDISM SECONDARY
     Route: 048
     Dates: start: 20090101
  3. PHOSPHORUS [Concomitant]
     Indication: RENAL TRANSPLANT
     Route: 048
     Dates: start: 20090101
  4. FUROSEMIDE [Concomitant]
     Indication: PRODUCT USED FOR UNKNOWN INDICATION
     Route: 042
     Dates: start: 20090312
  5. ZEMPLAR [Suspect]
     Indication: HYPERPARATHYROIDISM SECONDARY
     Route: 048
     Dates: start: 20090504
  6. METHYLPREDNISOLONE [Concomitant]
     Indication: RENAL TRANSPLANT
     Route: 048
     Dates: start: 20090117
  7. METOPROLOL TARTRATE [Concomitant]
     Indication: HYPERTENSION
     Dosage: 1/2 TAB TWICE DAILY
     Route: 048
     Dates: start: 20090101
  8. INSULIN [Concomitant]
     Indication: DIABETES MELLITUS
     Route: 058
     Dates: start: 20090101
  9. TAMSULOSIN HCL [Concomitant]
     Indication: RENAL TRANSPLANT
     Route: 048
     Dates: start: 20090101
  10. TACROLIMUS [Concomitant]
     Indication: RENAL TRANSPLANT
     Route: 048
     Dates: start: 20090117
  11. MYCOPHENOLATE MOFETIL [Concomitant]
     Indication: RENAL TRANSPLANT
     Route: 048
     Dates: start: 20090117
  12. LEVOTHYROXINE SODIUM [Concomitant]
     Indication: HYPOTHYROIDISM
     Route: 048
     Dates: start: 20030101

REACTIONS (4)
  - OEDEMA PERIPHERAL [None]
  - ORTHOPNOEA [None]
  - DYSPNOEA [None]
  - ACUTE PULMONARY OEDEMA [None]
